FAERS Safety Report 9469210 (Version 1)
Quarter: 2013Q3

REPORT INFORMATION
  Report Type: Spontaneous
  Country: US (occurrence: US)
  Receive Date: 20130821
  Receipt Date: 20130821
  Transmission Date: 20140515
  Serious: No
  Sender: FDA-Public Use
  Company Number: US-NOVEN-13US007324

PATIENT
  Sex: Female

DRUGS (2)
  1. MINIVELLE [Suspect]
     Indication: UROGENITAL DISORDER
     Dosage: 0.0375 MG, UNK
     Route: 062
     Dates: start: 2013
  2. ESTRACE VAGINAL [Concomitant]

REACTIONS (4)
  - Urogenital atrophy [Not Recovered/Not Resolved]
  - Incorrect product storage [Recovered/Resolved]
  - Haematuria [Recovered/Resolved]
  - Off label use [Not Recovered/Not Resolved]
